FAERS Safety Report 6195879-X (Version None)
Quarter: 2009Q2

REPORT INFORMATION
  Report Type: 
  Country: None (occurrence: None)
  Receive Date: 20090520
  Receipt Date: 20090508
  Transmission Date: 20091009
  Serious: Yes (Hospitalization)
  Sender: FDA-Public Use
  Company Number: DE-ROCHE-631867

PATIENT
  Sex: Female
  Weight: 75.5 kg

DRUGS (8)
  1. METHOXY POLYETHYLENE GLYCOL-EPOETIN BETA [Suspect]
     Dosage: DATE OF LAST DOSE PRIOR TO SAE: 06 MAY 2009. FORM: SYRINGE
     Route: 058
     Dates: start: 20090306
  2. FUROSEMID [Concomitant]
     Dosage: DRUG NAME FUROSEMID INCREASINGLY DOS.
     Dates: start: 20080827
  3. EXFORGE [Concomitant]
     Dosage: DRUG NAME: EXFORGE 5/160. FREQUENCY REPORTED AS : 1 X
     Dates: start: 20080827
  4. OMEPRAZOL [Concomitant]
     Dosage: DRUG NAME: OMEPRAZOL 20. FREQUENCY: 1 X
     Dates: start: 20080827
  5. ARIMIDEX [Concomitant]
     Dosage: FREQUENCY: 1 X
     Dates: start: 20080827
  6. CLOPIDOGREL [Concomitant]
     Dosage: DRUG NAME: ISCOVER 75. FREQUENCY: 1 X
     Dates: start: 20080915
  7. ATENOLOL [Concomitant]
     Dosage: DRUG NAME: ATENOLOL 100. TOTAL DAILY DOSE REPORTED AS : 1/2
     Dates: start: 20081205
  8. CALCIUM ACETATE [Concomitant]
     Dosage: FREQUENCY: 3X1
     Dates: start: 20090306

REACTIONS (1)
  - OEDEMA [None]
